FAERS Safety Report 5530838-9 (Version None)
Quarter: 2007Q4

REPORT INFORMATION
  Report Type: 
  Country: None (occurrence: None)
  Receive Date: 20071130
  Receipt Date: 20071121
  Transmission Date: 20080405
  Serious: Yes (Other)
  Sender: FDA-Public Use
  Company Number: US-JNJFOC-20071002776

PATIENT
  Age: 83 Year
  Sex: Female

DRUGS (1)
  1. REMICADE [Suspect]
     Indication: CROHN'S DISEASE
     Dosage: EVERY 8 TO 12 WEEKS
     Route: 042

REACTIONS (2)
  - LUPUS-LIKE SYNDROME [None]
  - POLYARTHRITIS [None]
